FAERS Safety Report 4354747-6 (Version None)
Quarter: 2004Q2

REPORT INFORMATION
  Report Type: 
  Country: None (occurrence: None)
  Receive Date: 20040507
  Receipt Date: 20040428
  Transmission Date: 20050107
  Serious: Yes (Other)
  Sender: FDA-Public Use
  Company Number: PHNU2004DE01677

PATIENT
  Age: 9 Year
  Sex: Male

DRUGS (3)
  1. SANDIMMUNE [Suspect]
     Indication: UVEITIS
     Dosage: 80 MG, BID
     Dates: start: 20030201
  2. CELLCEPT [Concomitant]
     Indication: UVEITIS
     Dosage: UNK, UNK
     Dates: start: 20031201
  3. STEROIDS NOS [Concomitant]

REACTIONS (3)
  - CONDITION AGGRAVATED [None]
  - PAPILLOEDEMA [None]
  - UVEITIS [None]
